FAERS Safety Report 9759669 (Version 1)
Quarter: 2013Q4

REPORT INFORMATION
  Report Type: Spontaneous
  Country: US (occurrence: US)
  Receive Date: 20131216
  Receipt Date: 20131216
  Transmission Date: 20140711
  Serious: No
  Sender: FDA-Public Use
  Company Number: US-GILEAD-2010-0028623

PATIENT
  Age: 66 Year
  Sex: Female

DRUGS (17)
  1. LETAIRIS [Suspect]
     Indication: PULMONARY ARTERIAL HYPERTENSION
     Route: 048
     Dates: start: 20100324
  2. ADVAIR DISKUS [Concomitant]
  3. FLONASE [Concomitant]
  4. SINGULAIR [Concomitant]
  5. ALBUTEROL [Concomitant]
  6. METFORMIN ER [Concomitant]
  7. ACTOS [Concomitant]
  8. DILTIAZEM CD [Concomitant]
  9. SPIRONOLACTONE [Concomitant]
  10. TORSEMIDE [Concomitant]
  11. CLONAZEPAM [Concomitant]
  12. MIRAPEX [Concomitant]
  13. DIGOXIN [Concomitant]
  14. ALENDRONATE [Concomitant]
  15. OMEPRAZOLE [Concomitant]
  16. TRAMADOL [Concomitant]
  17. COUMADIN [Concomitant]

REACTIONS (2)
  - Cellulitis [Recovered/Resolved]
  - Dehydration [Unknown]
